FAERS Safety Report 8816636 (Version 1)
Quarter: 2012Q4

REPORT INFORMATION
  Report Type: Spontaneous
  Country: US (occurrence: None)
  Receive Date: 20120928
  Receipt Date: 20120928
  Transmission Date: 20130627
  Serious: Yes (Other)
  Sender: FDA-Public Use
  Company Number: None

PATIENT
  Age: 31 Year
  Sex: Female
  Weight: 81.65 kg

DRUGS (2)
  1. MIRENA [Suspect]
     Indication: UTERINE PERFORATION
     Dosage: One iud 5 years vag
     Route: 067
     Dates: start: 20100205, end: 20101227
  2. MIRENA [Suspect]
     Indication: OVARIAN DISORDER
     Dosage: One iud 5 years vag
     Route: 067
     Dates: start: 20100205, end: 20101227

REACTIONS (3)
  - Uterine perforation [None]
  - Ovarian disorder [None]
  - Pain [None]
